FAERS Safety Report 13304837 (Version 2)
Quarter: 2017Q1

REPORT INFORMATION
  Report Type: Spontaneous
  Country: DE (occurrence: DE)
  Receive Date: 20170308
  Receipt Date: 20170317
  Transmission Date: 20170428
  Serious: Yes (Other)
  Sender: FDA-Public Use
  Company Number: DE-009507513-1703DEU000417

PATIENT
  Age: 61 Year
  Sex: Male
  Weight: 90 kg

DRUGS (1)
  1. KEYTRUDA [Suspect]
     Active Substance: PEMBROLIZUMAB
     Indication: MALIGNANT MELANOMA
     Dosage: 180 MG (2 MG/KG), Q3W
     Dates: start: 20161121

REACTIONS (3)
  - Malignant neoplasm progression [Unknown]
  - Sarcoidosis [Unknown]
  - Pulmonary sarcoidosis [Recovered/Resolved]

NARRATIVE: CASE EVENT DATE: 20170216
